FAERS Safety Report 20503634 (Version 1)
Quarter: 2022Q1

REPORT INFORMATION
  Report Type: Spontaneous
  Country: DE (occurrence: DE)
  Receive Date: 20220222
  Receipt Date: 20220222
  Transmission Date: 20220424
  Serious: Yes (Other)
  Sender: FDA-Public Use
  Company Number: DE-UCBSA-2022009494

PATIENT
  Age: 72 Year
  Sex: Female

DRUGS (3)
  1. LEVETIRACETAM [Suspect]
     Active Substance: LEVETIRACETAM
     Indication: Epilepsy
     Dosage: 500 MILLIGRAM, 2X/DAY (BID)
  2. LEVETIRACETAM [Suspect]
     Active Substance: LEVETIRACETAM
     Dosage: 1000 MILLIGRAM, 2X/DAY (BID)
  3. ESCITALOPRAM [Concomitant]
     Active Substance: ESCITALOPRAM OXALATE
     Indication: Product used for unknown indication

REACTIONS (9)
  - Generalised tonic-clonic seizure [Unknown]
  - Depression [Recovering/Resolving]
  - Affective disorder [Unknown]
  - Emotional disorder [Unknown]
  - Suicidal ideation [Unknown]
  - Depressed mood [Recovering/Resolving]
  - Disturbance in attention [Unknown]
  - Crying [Unknown]
  - Social avoidant behaviour [Unknown]
